FAERS Safety Report 17602757 (Version 2)
Quarter: 2020Q2

REPORT INFORMATION
  Report Type: Spontaneous
  Country: FR (occurrence: FR)
  Receive Date: 20200330
  Receipt Date: 20200413
  Transmission Date: 20200713
  Serious: Yes (Death, Hospitalization, Other)
  Sender: FDA-Public Use
  Company Number: FR-BAXTER-2020BAX006905

PATIENT
  Age: 20 Year
  Sex: Male

DRUGS (11)
  1. CYCLOPHOSPHAMIDE. [Suspect]
     Active Substance: CYCLOPHOSPHAMIDE
     Indication: HODGKIN^S DISEASE
     Dosage: CYCLIC; CYCLICAL
     Route: 065
  2. BLEOMYCIN [Suspect]
     Active Substance: BLEOMYCIN SULFATE
     Indication: HODGKIN^S DISEASE
     Dosage: CYCLIC; CYCLICAL
     Route: 065
  3. VINCRISTINE [Suspect]
     Active Substance: VINCRISTINE
     Indication: HODGKIN^S DISEASE
     Dosage: CYCLIC; CYCLICAL
     Route: 065
  4. DOXIL [Suspect]
     Active Substance: DOXORUBICIN HYDROCHLORIDE
     Indication: HODGKIN^S DISEASE
     Dosage: CYCLIC; CYCLICAL
     Route: 065
  5. PROCARBAZINE [Suspect]
     Active Substance: PROCARBAZINE
     Indication: HODGKIN^S DISEASE
     Dosage: CYCLIC; CYCLICAL
     Route: 065
  6. RIBAVIRINE [Suspect]
     Active Substance: RIBAVIRIN
     Indication: PNEUMONIA MEASLES
     Dosage: CYCLIC; CYCLICAL
     Route: 042
  7. PREDNISONE. [Suspect]
     Active Substance: PREDNISONE
     Indication: HODGKIN^S DISEASE
     Route: 065
  8. PROPOFOL. [Concomitant]
     Active Substance: PROPOFOL
     Indication: SEDATION
     Dosage: HIGH DOSE
     Route: 042
  9. CELLTOP [Suspect]
     Active Substance: ETOPOSIDE
     Indication: HODGKIN^S DISEASE
     Dosage: CYCLIC; CYCLICAL
     Route: 065
  10. ETOPOSIDE. [Concomitant]
     Active Substance: ETOPOSIDE
     Indication: HODGKIN^S DISEASE
     Route: 065
  11. HUMAN IMMUNOGLOBULIN (IMMUNOGLOBULIN HUMAN NORMAL) [Suspect]
     Active Substance: HUMAN IMMUNOGLOBULIN G
     Indication: PNEUMONIA MEASLES
     Dosage: 1000 MG/KG, QD
     Route: 042

REACTIONS (20)
  - Oropharyngeal pain [Fatal]
  - Neutropenia [Fatal]
  - Dyspnoea [Fatal]
  - Bronchopulmonary aspergillosis [Unknown]
  - Respiratory failure [Fatal]
  - Lower respiratory tract inflammation [Fatal]
  - Lung infiltration [Fatal]
  - Rhinitis [Fatal]
  - Haemolytic anaemia [Unknown]
  - Malaise [Fatal]
  - Pyrexia [Fatal]
  - Pseudomonas infection [Unknown]
  - Pneumonia measles [Fatal]
  - Hypotension [Fatal]
  - Acute respiratory failure [Fatal]
  - Leukopenia [Fatal]
  - Febrile neutropenia [Unknown]
  - Hodgkin^s disease stage IV [Unknown]
  - Conjunctivitis [Fatal]
  - Rash erythematous [Fatal]
